FAERS Safety Report 9093237 (Version 1)
Quarter: 2013Q1

REPORT INFORMATION
  Report Type: Spontaneous
  Country: US (occurrence: None)
  Receive Date: 20130213
  Receipt Date: 20130213
  Transmission Date: 20140127
  Serious: Yes (Other)
  Sender: FDA-Public Use
  Company Number: None

PATIENT
  Age: 63 Year
  Sex: Female
  Weight: 65.77 kg

DRUGS (1)
  1. HYDROCODONE [Suspect]
     Indication: INTERVERTEBRAL DISC PROTRUSION
     Dates: start: 1985, end: 2012

REACTIONS (1)
  - Gait disturbance [None]
